FAERS Safety Report 4409729-2 (Version None)
Quarter: 2004Q3

REPORT INFORMATION
  Report Type: 
  Country: None (occurrence: None)
  Receive Date: 20040723
  Receipt Date: 20040615
  Transmission Date: 20050211
  Serious: Yes (Hospitalization)
  Sender: FDA-Public Use
  Company Number: DRON00204002000

PATIENT
  Age: 75 Year
  Sex: Male
  Weight: 68.4 kg

DRUGS (8)
  1. MARINOL [Suspect]
     Indication: ANTIEMETIC SUPPORTIVE CARE
     Dosage: 2.5 MG BID PO, 2.5 MG QID PO
     Route: 048
     Dates: start: 20040610, end: 20040610
  2. MARINOL [Suspect]
     Indication: ANTIEMETIC SUPPORTIVE CARE
     Dosage: 2.5 MG BID PO, 2.5 MG QID PO
     Route: 048
     Dates: start: 20040611, end: 20040614
  3. DEXAMETHASONE [Suspect]
     Indication: ANTIEMETIC SUPPORTIVE CARE
     Dosage: 20 MG ONCE PO
     Route: 048
     Dates: start: 20040610, end: 20040610
  4. ONDANSETRON HCL [Suspect]
     Indication: ANTIEMETIC SUPPORTIVE CARE
     Dosage: 16 MG ONCE IV
     Route: 042
     Dates: start: 20040610, end: 20040610
  5. FOSINOPRIL SODIUM [Concomitant]
  6. ADALAT [Concomitant]
  7. METFORMIN HCL [Concomitant]
  8. TERAZOSIN (TERAZOSIN) [Concomitant]

REACTIONS (7)
  - ANAEMIA [None]
  - BIOPSY BONE MARROW ABNORMAL [None]
  - NAUSEA [None]
  - PNEUMONIA KLEBSIELLA [None]
  - PNEUMONITIS [None]
  - SEPSIS [None]
  - VOMITING [None]
